FAERS Safety Report 24092669 (Version 1)
Quarter: 2024Q3

REPORT INFORMATION
  Report Type: Spontaneous
  Country: US (occurrence: US)
  Receive Date: 20240715
  Receipt Date: 20240715
  Transmission Date: 20241017
  Serious: No
  Sender: XERIS PHARMACEUTICALS
  Company Number: US-BRIAN CONNER SVP QUALITY AND CHIEF COMPLIANCE OFFICER-2024XER00312

PATIENT
  Sex: Female
  Weight: 70.307 kg

DRUGS (2)
  1. GVOKE [Suspect]
     Active Substance: GLUCAGON
     Indication: Diabetes mellitus
     Dosage: 0.5 MG, AS NEEDED
  2. GVOKE [Suspect]
     Active Substance: GLUCAGON
     Indication: Hypoglycaemia

REACTIONS (3)
  - Device defective [Unknown]
  - Neuralgia [Not Recovered/Not Resolved]
  - Injection site injury [Not Recovered/Not Resolved]
